FAERS Safety Report 15467172 (Version 2)
Quarter: 2019Q1

REPORT INFORMATION
  Report Type: Spontaneous
  Country: IT (occurrence: IT)
  Receive Date: 20181005
  Receipt Date: 20190221
  Transmission Date: 20190417
  Serious: Yes (Life-Threatening, Other)
  Sender: FDA-Public Use
  Company Number: IT-AUROBINDO-AUR-APL-2018-048522

PATIENT

DRUGS (6)
  1. TOPIRAMATE. [Suspect]
     Active Substance: TOPIRAMATE
     Indication: EPILEPSY
     Dosage: 100 MILLIGRAM, ONCE A DAY
     Route: 048
  2. RIVOTRIL [Suspect]
     Active Substance: CLONAZEPAM
     Indication: EPILEPSY
     Dosage: 12 GTT, ONCE A DAY
     Route: 048
     Dates: start: 20180123
  3. LUMINALE [Suspect]
     Active Substance: PHENOBARBITAL
     Indication: EPILEPSY
     Dosage: 450 MILLIGRAM, TOTAL
     Route: 065
  4. FRISIUM [Suspect]
     Active Substance: CLOBAZAM
     Indication: EPILEPSY
     Dosage: 15 MILLIGRAM, ONCE A DAY
     Route: 048
  5. DINTOINA [Suspect]
     Active Substance: PHENYTOIN SODIUM
     Indication: EPILEPSY
     Dosage: 150 MILLIGRAM, ONCE A DAY
     Route: 048
  6. FRISIUM [Suspect]
     Active Substance: CLOBAZAM
     Dosage: 45 MILLIGRAM, ONCE A DAY
     Route: 048

REACTIONS (7)
  - Hypernatraemia [Recovering/Resolving]
  - Sopor [Recovering/Resolving]
  - Hypocalcaemia [Recovering/Resolving]
  - Hypokalaemia [Recovering/Resolving]
  - Hyperchloraemia [Recovering/Resolving]
  - Hypotonia [Recovering/Resolving]
  - Poor feeding infant [Recovering/Resolving]

NARRATIVE: CASE EVENT DATE: 20180124
